FAERS Safety Report 8914402 (Version 1)
Quarter: 2012Q4

REPORT INFORMATION
  Report Type: 
  Country: US (occurrence: US)
  Receive Date: 20121119
  Receipt Date: 20121119
  Transmission Date: 20130627
  Serious: Yes (Hospitalization, Other)
  Sender: FDA-Public Use
  Company Number: US-SANOFI-AVENTIS-2012SA081984

PATIENT
  Sex: Female

DRUGS (4)
  1. LANTUS SOLOSTAR [Suspect]
     Indication: TYPE II DIABETES MELLITUS
     Dosage: Dose:45 unit(s)
     Route: 058
     Dates: start: 2011
  2. SOLOSTAR [Suspect]
     Indication: TYPE II DIABETES MELLITUS
     Dates: start: 2011
  3. HUMALOG [Suspect]
     Dosage: took with lunch and supper meals.
     Route: 065
  4. CORTICOSTEROIDS [Suspect]
     Route: 065
     Dates: start: 201210

REACTIONS (9)
  - Choking [Unknown]
  - Emphysema [Unknown]
  - Blood glucose increased [Unknown]
  - Headache [Unknown]
  - Feeling abnormal [Unknown]
  - Dysphagia [Not Recovered/Not Resolved]
  - Blood glucose decreased [Unknown]
  - Dysarthria [Unknown]
  - Unevaluable event [Unknown]
